FAERS Safety Report 7372826-6 (Version None)
Quarter: 2011Q1

REPORT INFORMATION
  Report Type: 
  Country: None (occurrence: None)
  Receive Date: 20110324
  Receipt Date: 20110315
  Transmission Date: 20110831
  Serious: Yes (Hospitalization)
  Sender: FDA-Public Use
  Company Number: IE-MEDIMMUNE-MEDI-0012955

PATIENT
  Sex: Female
  Weight: 6.62 kg

DRUGS (7)
  1. SYNAGIS [Suspect]
     Indication: HEART DISEASE CONGENITAL
     Route: 030
     Dates: start: 20101001, end: 20110201
  2. LANSOPRAZOLE [Concomitant]
  3. METOCLOPRAMIDE [Concomitant]
  4. FUROSEMIDE [Concomitant]
  5. UNSPECIFIED ANTIBIOTICS [Concomitant]
     Dates: start: 20110315
  6. LEVOTHYROXINE SODIUM [Concomitant]
  7. SPIRONOLACTONE [Concomitant]

REACTIONS (4)
  - RESPIRATORY SYNCYTIAL VIRUS INFECTION [None]
  - WHEEZING [None]
  - BRONCHIOLITIS [None]
  - PYREXIA [None]
